FAERS Safety Report 8603465-4 (Version None)
Quarter: 2012Q3

REPORT INFORMATION
  Report Type: 
  Country: None (occurrence: None)
  Receive Date: 20120806
  Receipt Date: 20120726
  Transmission Date: 20120928
  Serious: Yes (Disabling)
  Sender: FDA-Public Use
  Company Number: AUR-APL-2012-03247

PATIENT
  Age: 66 Year
  Sex: Female
  Weight: 81 kg

DRUGS (7)
  1. DICLOFENAC SODIUM [Concomitant]
  2. MODURETIC 5-50 [Concomitant]
  3. SIMVASTATIN [Suspect]
     Indication: PRODUCT USED FOR UNKNOWN INDICATION
     Dosage: UNKNOWN
     Dates: start: 20120511, end: 20120608
  4. LEVOTHYROXINE SODIUM [Concomitant]
  5. ACETAMINOPHEN [Concomitant]
  6. PROPRANOLOL [Concomitant]
  7. LANSOPRAZOLE [Concomitant]

REACTIONS (2)
  - MYALGIA [None]
  - FATIGUE [None]
